FAERS Safety Report 6266650-5 (Version None)
Quarter: 2009Q3

REPORT INFORMATION
  Report Type: 
  Country: None (occurrence: None)
  Receive Date: 20090710
  Receipt Date: 20090629
  Transmission Date: 20100115
  Serious: No
  Sender: FDA-Public Use
  Company Number: DSU-2009-01349

PATIENT
  Sex: Female
  Weight: 79.3795 kg

DRUGS (8)
  1. WELCHOL [Suspect]
     Indication: HYPERLIPIDAEMIA
     Dosage: 3750 MG (1875 MG, BID), PER ORAL
     Route: 048
     Dates: start: 20070101
  2. VERELAN (VERAPAMIL HYDROCHLORIDE) (VERAPAMIL HYDROCHLORIDE) [Concomitant]
  3. EVISTA (RALOXIFENE HYDROCHLORIDE)(60 MILLIGRAM, CAPSULE) (RALOXIFENE H [Concomitant]
  4. HYDROCHLOROTHIAZIDE [Concomitant]
  5. CALCIUM/VITAMIN D (ERGOCALCIFEROL, CALCIUM PHOSPHATE, CALCIUM SODIUM [Concomitant]
  6. TOPROL XL (METOPROLOL SUCCINATE) (100 MILLIGRAM)(METOPROLOL SUCCINATE) [Concomitant]
  7. BONIVA (IBANDRONATE SODIUM) (TABLET) (IBANDRONATE SODIUM) [Concomitant]
  8. ADVIL (IBUPROFEN) (IBUPROFEN) [Concomitant]

REACTIONS (7)
  - DRUG EFFECT DECREASED [None]
  - JOINT DISLOCATION [None]
  - MYALGIA [None]
  - NERVE COMPRESSION [None]
  - PRODUCT SIZE ISSUE [None]
  - ROAD TRAFFIC ACCIDENT [None]
  - WEIGHT INCREASED [None]
